FAERS Safety Report 6881336-1 (Version None)
Quarter: 2010Q2

REPORT INFORMATION
  Report Type: 
  Country: None (occurrence: None)
  Receive Date: 20100630
  Receipt Date: 20090528
  Transmission Date: 20101027
  Serious: No
  Sender: FDA-Public Use
  Company Number: 2009-01090

PATIENT
  Age: 26 Year
  Sex: Female
  Weight: 48.0813 kg

DRUGS (6)
  1. ZICAM COLD REMEDY GEL SWABS [Suspect]
     Dosage: ON AND OFF ONGOING, EARLY 2008
  2. ZICAM COLD REMEDY ORAL MIST [Suspect]
     Dosage: ON AND OFF ONGOING; EARLY 2008
  3. MULTI-VITAMIN [Concomitant]
  4. FISH OIL [Concomitant]
  5. BIOTIN [Concomitant]
  6. ACIDOPHILUS [Concomitant]

REACTIONS (1)
  - ANOSMIA [None]
